FAERS Safety Report 8026918-9 (Version None)
Quarter: 2012Q1

REPORT INFORMATION
  Report Type: 
  Country: None (occurrence: None)
  Receive Date: 20120103
  Receipt Date: 20111222
  Transmission Date: 20120608
  Serious: Yes (Hospitalization)
  Sender: FDA-Public Use
  Company Number: 2011SP059099

PATIENT
  Age: 56 Year
  Sex: Male
  Weight: 76 kg

DRUGS (7)
  1. LEVETIRACETAM [Concomitant]
  2. NOVORAPID [Concomitant]
  3. TEMOZOLOMIDE [Suspect]
     Indication: MALIGNANT GLIOMA
     Dosage: 200 MG/M2; QD; PO
     Route: 048
     Dates: start: 20110809, end: 20111022
  4. TGF-BETA-RI KINASE INHIBITOR (OTHER ANTINEOPLASTIC AGENTS) [Suspect]
     Indication: MALIGNANT GLIOMA
     Dosage: 160 MG;BID;PO
     Route: 048
     Dates: start: 20110809, end: 20111112
  5. OMEPRAZOLE [Concomitant]
  6. METFORMIN HCL [Concomitant]
  7. GLIMEPIRIDE [Concomitant]

REACTIONS (4)
  - THROMBOCYTOPENIA [None]
  - NEUROLOGICAL DECOMPENSATION [None]
  - INTRACRANIAL TUMOUR HAEMORRHAGE [None]
  - BRAIN OEDEMA [None]
